FAERS Safety Report 6369857-1 (Version None)
Quarter: 2009Q3

REPORT INFORMATION
  Report Type: 
  Country: None (occurrence: None)
  Receive Date: 20090923
  Receipt Date: 20080130
  Transmission Date: 20100115
  Serious: Yes (Other)
  Sender: FDA-Public Use
  Company Number: US-ASTRAZENECA-2006UW11366

PATIENT
  Age: 24333 Day
  Sex: Male
  Weight: 46.3 kg

DRUGS (36)
  1. SEROQUEL [Suspect]
     Indication: POOR QUALITY SLEEP
     Dosage: 100-400 MG
     Route: 048
     Dates: start: 20051116
  2. LEXAPRO [Concomitant]
     Route: 048
  3. LISINOPRIL [Concomitant]
     Route: 048
  4. METOPROLOL TARTRATE [Concomitant]
     Route: 048
  5. CYMBALTA [Concomitant]
     Route: 048
  6. VICODIN [Concomitant]
     Dosage: 6 - 8 TABLETS AS REQUIRED
     Route: 048
  7. ULTRAM [Concomitant]
     Route: 048
  8. DOXYCYCLINE [Concomitant]
     Route: 048
  9. DILANTIN [Concomitant]
     Route: 048
  10. ALBUTEROL [Concomitant]
     Dosage: STRENGTH 0.83 MG/ML
     Route: 055
  11. ADVAIR HFA [Concomitant]
     Dosage: STRENGTH 250/50, BID
     Route: 048
  12. AMBIEN [Concomitant]
     Route: 048
  13. ASMANEX TWISTHALER [Concomitant]
  14. AUGMENTIN [Concomitant]
     Route: 048
  15. BENZONATATE [Concomitant]
     Route: 048
  16. CIPROFLOXACIN HCL [Concomitant]
     Route: 048
  17. PLAVIX [Concomitant]
     Route: 048
  18. COMBIVENT [Concomitant]
  19. COREG [Concomitant]
     Route: 048
  20. DICLOFENAC SODIUM [Concomitant]
     Route: 048
  21. DIGOXIN [Concomitant]
     Route: 048
  22. DILTIAZEM CD [Concomitant]
     Route: 048
  23. HALOPERIDOL [Concomitant]
     Route: 048
  24. OXYCODONE HCL AND ACETAMINOPHEN [Concomitant]
     Dosage: STRENGTH 5 MG/325 MG
     Route: 048
  25. NEXIUM [Concomitant]
     Route: 048
  26. PROMETHAZINE [Concomitant]
     Route: 048
  27. ZOLOFT [Concomitant]
     Dosage: 25 - 100 MG AS STRENGTH
     Route: 048
  28. AMARYL [Concomitant]
     Route: 048
  29. XANAX [Concomitant]
     Dosage: 6 - 8 TABLET P.R.N
     Route: 048
  30. ROZEREM [Concomitant]
  31. AZITHROMYCIN [Concomitant]
     Route: 048
  32. CEPHALEXIN [Concomitant]
     Route: 048
  33. DIOVAN [Concomitant]
     Route: 048
  34. PANLOR DC [Concomitant]
  35. PHENYTOIN [Concomitant]
     Dosage: STRENGTH 100 MG
  36. PREDNISONE TAB [Concomitant]
     Route: 048

REACTIONS (14)
  - ARRHYTHMIA [None]
  - ARTHRALGIA [None]
  - BACK PAIN [None]
  - BRONCHITIS [None]
  - CONSTIPATION [None]
  - CONVULSION [None]
  - DIARRHOEA [None]
  - DRUG INEFFECTIVE [None]
  - HYPERKALAEMIA [None]
  - MUSCULOSKELETAL PAIN [None]
  - PAIN IN EXTREMITY [None]
  - PENILE BLISTER [None]
  - RASH [None]
  - SINUS HEADACHE [None]
